FAERS Safety Report 25933307 (Version 1)
Quarter: 2025Q4

REPORT INFORMATION
  Report Type: Spontaneous
  Country: CN (occurrence: CN)
  Receive Date: 20251017
  Receipt Date: 20251017
  Transmission Date: 20260117
  Serious: Yes (Other)
  Sender: JIANGSU HENGRUI
  Company Number: CN-JIANGSU HENGRUI PHARMACEUTICALS CO., LTD.-H2025001207027

PATIENT
  Age: 47 Year

DRUGS (4)
  1. OXALIPLATIN [Suspect]
     Active Substance: OXALIPLATIN
     Indication: Oesophageal adenocarcinoma
     Dosage: 236 MG
  2. OXALIPLATIN [Suspect]
     Active Substance: OXALIPLATIN
     Dosage: UNK
  3. TEGAFUR [Concomitant]
     Active Substance: TEGAFUR
     Indication: Oesophageal adenocarcinoma
     Dosage: 2 CAPSULES, BID
  4. TEGAFUR [Concomitant]
     Active Substance: TEGAFUR
     Dosage: UNK

REACTIONS (5)
  - Anterior chamber inflammation [Recovering/Resolving]
  - Serous retinal detachment [Recovering/Resolving]
  - Cataract [Recovering/Resolving]
  - Iris cyst [Recovering/Resolving]
  - Product use in unapproved indication [Unknown]
